FAERS Safety Report 20049750 (Version 1)
Quarter: 2021Q4

REPORT INFORMATION
  Report Type: Other
  Country: US (occurrence: US)
  Receive Date: 20211109
  Receipt Date: 20211109
  Transmission Date: 20220303
  Serious: Yes (Life-Threatening, Hospitalization, Other)
  Sender: FDA-Public Use
  Company Number: US-DENTSPLY-2021SCDP000324

PATIENT
  Age: 14 Year
  Sex: Female
  Weight: 56.4 kg

DRUGS (3)
  1. LIDOCAINE HYDROCHLORIDE AND EPINEPHRINE BITARTRATE [Suspect]
     Active Substance: EPINEPHRINE BITARTRATE\LIDOCAINE HYDROCHLORIDE
     Indication: Local anaesthesia
     Dosage: 3 MILLILITER TOTAL 1% LIDOCAINE WITH 1:100,000 EPINEPHRINE INJECTION INTO THE REGION OF THE RIGHT SP
  2. OXYMETAZOLINE [Concomitant]
     Active Substance: OXYMETAZOLINE
     Indication: Product used for unknown indication
     Dosage: UNK PLEDGETS WERE PLACED IN BILATERAL NASAL CAVITIES
  3. EPINEPHRINE [Concomitant]
     Active Substance: EPINEPHRINE
     Indication: Product used for unknown indication
     Dosage: 3 MILLILITER TOTAL 1% LIDOCAINE WITH 1:100,000 EPINEPHRINE INJECTION INTO THE REGION OF THE RIGHT SP

REACTIONS (6)
  - Electrocardiogram ST segment depression [None]
  - Left ventricular dysfunction [None]
  - Trigemino-cardiac reflex [None]
  - Pulmonary oedema [None]
  - Cardiac arrest [Recovered/Resolved]
  - Sinus bradycardia [Recovered/Resolved]
